FAERS Safety Report 6249616-0 (Version None)
Quarter: 2009Q2

REPORT INFORMATION
  Report Type: 
  Country: None (occurrence: None)
  Receive Date: 20090629
  Receipt Date: 20090617
  Transmission Date: 20091009
  Serious: Yes (Other)
  Sender: FDA-Public Use
  Company Number: CH-ELI_LILLY_AND_COMPANY-CH200906004553

PATIENT
  Age: 66 Year
  Sex: Female

DRUGS (15)
  1. FORTEO [Suspect]
     Indication: OSTEOPOROSIS
     Dosage: 20 U, DAILY (1/D)
     Dates: start: 20081112
  2. SURMONTIL [Concomitant]
     Dosage: 1 D/F, DAILY (1/D)
  3. SORTIS [Concomitant]
     Dosage: 20 MG, DAILY (1/D)
  4. ASPIRIN [Concomitant]
     Dosage: 100 MG, DAILY (1/D)
  5. NEBILET [Concomitant]
     Dosage: 5 MG, DAILY (1/D)
  6. EFFEXOR [Concomitant]
     Dosage: 150 MG, DAILY (1/D)
  7. TORSEMIDE [Concomitant]
     Dosage: 10 MG, DAILY (1/D)
  8. CALCIMAGON-D 3 [Concomitant]
     Dosage: 500 MG, DAILY (1/D)
  9. GABAPENTIN [Concomitant]
     Dosage: 900 MG, DAILY (1/D)
  10. DURAGESIC-100 [Concomitant]
     Dosage: 75 MG, UNK
  11. NEXIUM-MUPS                        /01479302/ [Concomitant]
     Dosage: 20 MG, DAILY (1/D)
  12. SERESTA [Concomitant]
     Dosage: 15 MG, DAILY (1/D)
  13. ACETAMINOPHEN [Concomitant]
     Dosage: 500 MG, DAILY (1/D)
  14. MADOPAR [Concomitant]
     Dosage: UNK UNK, DAILY (1/D)
  15. SYMBICORT [Concomitant]
     Dosage: UNK UNK, 2/D

REACTIONS (1)
  - BREAST MASS [None]
